FAERS Safety Report 14891963 (Version 1)
Quarter: 2018Q2

REPORT INFORMATION
  Report Type: Report from Study
  Country: GB (occurrence: GB)
  Receive Date: 20180514
  Receipt Date: 20180514
  Transmission Date: 20180711
  Serious: Yes (Hospitalization)
  Sender: FDA-Public Use
  Company Number: GB-FRESENIUS KABI-FK201805736

PATIENT
  Age: 59 Year
  Sex: Male

DRUGS (10)
  1. CALCIUM CHLORIDE. [Suspect]
     Active Substance: CALCIUM CHLORIDE
     Indication: PARENTERAL NUTRITION
     Route: 051
  2. POTASSIUM CHLORIDE. [Suspect]
     Active Substance: POTASSIUM CHLORIDE
     Indication: PARENTERAL NUTRITION
     Route: 051
  3. CERNEVIT [Suspect]
     Active Substance: VITAMINS
     Indication: PARENTERAL NUTRITION
     Route: 051
  4. WATER FOR INJECTIONS [Suspect]
     Active Substance: WATER
     Indication: PARENTERAL NUTRITION
     Route: 051
  5. GLUCOSE [Suspect]
     Active Substance: DEXTROSE
     Indication: PARENTERAL NUTRITION
     Route: 051
  6. SODIUM GLYCEROPHOSPHATE [Suspect]
     Active Substance: SODIUM GLYCEROPHOSPHATE
     Indication: PARENTERAL NUTRITION
     Route: 051
  7. SMOFLIPID [Suspect]
     Active Substance: FISH OIL\MEDIUM-CHAIN TRIGLYCERIDES\OLIVE OIL\SOYBEAN OIL
     Indication: PARENTERAL NUTRITION
     Route: 051
  8. SODIUM CHLORIDE. [Suspect]
     Active Substance: SODIUM CHLORIDE
     Indication: PARENTERAL NUTRITION
     Route: 051
  9. ADDAMEL N [Suspect]
     Active Substance: CHROMIC CHLORIDE\CUPROUS CHLORIDE\FERRIC CHLORIDE\MANGANESE CHLORIDE\POTASSIUM IODIDE\SODIUM FLUORIDE\SODIUM MOLYBDATE DIHYDRATE\SODIUM SELENITE\ZINC CHLORIDE
     Indication: PARENTERAL NUTRITION
     Route: 051
  10. AMINOVEN (NOT SPECIFIED) [Suspect]
     Active Substance: AMINO ACIDS
     Indication: PARENTERAL NUTRITION
     Route: 051

REACTIONS (3)
  - Arrhythmia [Unknown]
  - Blood potassium increased [Unknown]
  - Malaise [Unknown]

NARRATIVE: CASE EVENT DATE: 20180504
